FAERS Safety Report 7760344-2 (Version None)
Quarter: 2011Q3

REPORT INFORMATION
  Report Type: 
  Country: None (occurrence: None)
  Receive Date: 20110919
  Receipt Date: 20110907
  Transmission Date: 20111222
  Serious: Yes (Hospitalization)
  Sender: FDA-Public Use
  Company Number: US-BAYER-2011-054789

PATIENT
  Age: 29 Year
  Sex: Female
  Weight: 118 kg

DRUGS (12)
  1. YAZ [Suspect]
     Indication: CONTRACEPTION
     Dosage: UNK, QD
     Route: 048
     Dates: start: 20080101, end: 20080101
  2. CALCIUM CARBONATE [Concomitant]
     Dosage: UNK UNK, PRN
     Route: 048
  3. ACETAMINOPHEN AND HYDROCODONE BITARTRATE [Concomitant]
     Route: 048
  4. DARVOCET [Concomitant]
     Dosage: UNK UNK, PRN
     Route: 048
  5. IMITREX [Concomitant]
     Dosage: UNK UNK, PRN
  6. NAPROXEN [Concomitant]
     Dosage: 500 MG, UNK
     Route: 048
     Dates: start: 20080813
  7. ASCORBIC ACID [Concomitant]
     Dosage: UNK UNK, PRN
     Route: 048
  8. CHANTIX [Concomitant]
  9. XANAX [Concomitant]
     Dosage: 0.5 MG, PRN
     Route: 048
  10. VITAMIN B-12 [Concomitant]
     Dosage: UNK UNK, BID
     Route: 048
  11. MULTI-VITAMIN [Concomitant]
     Dosage: UNK UNK, PRN
     Route: 048
  12. ZINC [Concomitant]
     Dosage: UNK UNK, BIW
     Route: 048

REACTIONS (1)
  - PULMONARY EMBOLISM [None]
